FAERS Safety Report 5905514-0 (Version None)
Quarter: 2008Q4

REPORT INFORMATION
  Report Type: 
  Country: None (occurrence: None)
  Receive Date: 20081001
  Receipt Date: 20081001
  Transmission Date: 20090506
  Serious: Yes (Death, Hospitalization)
  Sender: FDA-Public Use
  Company Number: None

PATIENT
  Sex: Female

DRUGS (6)
  1. REVLIMID [Suspect]
     Dosage: 10MG DAILY ORALLY
     Route: 048
     Dates: start: 20080716, end: 20080726
  2. FOLIC ACID [Concomitant]
  3. FERROUS GLUOCONATE [Concomitant]
  4. TYLENOL (CAPLET) [Concomitant]
  5. VITAMIN D [Concomitant]
  6. FOSAMAX PLUS D [Concomitant]

REACTIONS (11)
  - ASTHENIA [None]
  - BLOOD CREATININE INCREASED [None]
  - CEREBRAL DISORDER [None]
  - FATIGUE [None]
  - HYPERCALCAEMIA [None]
  - INFECTION [None]
  - MALIGNANT NEOPLASM PROGRESSION [None]
  - MENTAL STATUS CHANGES [None]
  - MULTIPLE MYELOMA [None]
  - PANCYTOPENIA [None]
  - RENAL DISORDER [None]
